FAERS Safety Report 19264123 (Version 1)
Quarter: 2021Q2

REPORT INFORMATION
  Report Type: Spontaneous
  Country: US (occurrence: US)
  Receive Date: 20210517
  Receipt Date: 20210517
  Transmission Date: 20210717
  Serious: Yes (Other)
  Sender: FDA-Public Use
  Company Number: US-SA-2021SA160781

PATIENT
  Age: 39 Year
  Sex: Male

DRUGS (1)
  1. LEMTRADA [Suspect]
     Active Substance: ALEMTUZUMAB
     Indication: RELAPSING-REMITTING MULTIPLE SCLEROSIS
     Dosage: UNK
     Route: 041

REACTIONS (7)
  - Thyroxine free increased [Unknown]
  - Fatigue [Unknown]
  - Autoimmune thyroiditis [Unknown]
  - Hyperthyroidism [Unknown]
  - Tri-iodothyronine increased [Unknown]
  - Blood thyroid stimulating hormone decreased [Unknown]
  - Hyperhidrosis [Unknown]
